FAERS Safety Report 5468741-5 (Version None)
Quarter: 2007Q3

REPORT INFORMATION
  Report Type: 
  Country: None (occurrence: None)
  Receive Date: 20070926
  Receipt Date: 20070917
  Transmission Date: 20080115
  Serious: Yes (Other)
  Sender: FDA-Public Use
  Company Number: AU-PFIZER INC-2007015291

PATIENT
  Sex: Male

DRUGS (2)
  1. ATORVASTATIN CALCIUM [Suspect]
     Indication: CORONARY ARTERY DISEASE
     Dosage: DAILY DOSE:40MG
     Route: 048
     Dates: start: 20050217, end: 20050317
  2. ATORVASTATIN CALCIUM [Suspect]
     Dosage: DAILY DOSE:40MG
     Route: 048
     Dates: start: 20050318, end: 20061204

REACTIONS (1)
  - SQUAMOUS CELL CARCINOMA [None]
